FAERS Safety Report 19512276 (Version 2)
Quarter: 2021Q3

REPORT INFORMATION
  Report Type: Spontaneous
  Country: JP (occurrence: JP)
  Receive Date: 20210709
  Receipt Date: 20210721
  Transmission Date: 20211014
  Serious: Yes (Hospitalization)
  Sender: FDA-Public Use
  Company Number: JP-ELI_LILLY_AND_COMPANY-JP202107000465

PATIENT
  Age: 37 Year
  Sex: Female

DRUGS (8)
  1. ACINON [NIZATIDINE] [Concomitant]
     Dosage: 150 MG, PRN
     Route: 048
     Dates: start: 20161207
  2. VOLTAREN [Concomitant]
     Active Substance: DICLOFENAC SODIUM
     Indication: MIGRAINE
     Dosage: 25 MG, PRN
     Route: 048
     Dates: start: 20161217
  3. MIGSIS [Concomitant]
     Active Substance: LOMERIZINE HYDROCHLORIDE
     Indication: MIGRAINE
     Dosage: 5 MG, BID
     Route: 048
     Dates: start: 20200829
  4. GOSHUYUTO [Concomitant]
     Active Substance: HERBALS
     Indication: MIGRAINE
     Dosage: 2.5 G, TID
     Route: 048
     Dates: start: 20180707
  5. BOSMIN [EPINEPHRINE] [Suspect]
     Active Substance: EPINEPHRINE
     Indication: ANAPHYLACTIC SHOCK
     Dosage: 1 ML
     Route: 041
     Dates: start: 20210626, end: 20210626
  6. BOSMIN [EPINEPHRINE] [Suspect]
     Active Substance: EPINEPHRINE
     Dosage: 0.25 MG
     Route: 030
     Dates: start: 20210626, end: 20210626
  7. CERCINE [Concomitant]
     Active Substance: DIAZEPAM
     Indication: MIGRAINE
     Dosage: 2 MG, PRN
     Route: 048
     Dates: start: 20191207
  8. EMGALITY [Suspect]
     Active Substance: GALCANEZUMAB-GNLM
     Indication: MIGRAINE
     Dosage: 240 MG, MONTHLY (1/M)
     Route: 058
     Dates: start: 20210626, end: 20210626

REACTIONS (5)
  - Blood pressure increased [Recovered/Resolved]
  - Chest pain [Recovered/Resolved]
  - Anaphylactic shock [Recovered/Resolved]
  - Troponin increased [Not Recovered/Not Resolved]
  - Headache [Recovered/Resolved]

NARRATIVE: CASE EVENT DATE: 20210626
